FAERS Safety Report 10243195 (Version 2)
Quarter: 2014Q3

REPORT INFORMATION
  Report Type: Spontaneous
  Country: US (occurrence: None)
  Receive Date: 20140616
  Receipt Date: 20140703
  Transmission Date: 20150326
  Serious: Yes (Hospitalization)
  Sender: FDA-Public Use
  Company Number: UNT-2014-000170

PATIENT
  Age: 63 Year
  Sex: Female
  Weight: 76.2 kg

DRUGS (2)
  1. TYVASO [Suspect]
     Active Substance: TREPROSTINIL
     Indication: PULMONARY HYPERTENSION
     Route: 055
     Dates: start: 20110121, end: 20140505
  2. TYVASO [Suspect]
     Active Substance: TREPROSTINIL
     Indication: NEUROFIBROMATOSIS
     Route: 055
     Dates: start: 20110121, end: 20140505

REACTIONS (2)
  - Lung transplant [None]
  - Oxygen consumption increased [None]

NARRATIVE: CASE EVENT DATE: 20140415
